FAERS Safety Report 16357295 (Version 1)
Quarter: 2019Q2

REPORT INFORMATION
  Report Type: Spontaneous
  Country: BG (occurrence: BG)
  Receive Date: 20190527
  Receipt Date: 20190527
  Transmission Date: 20190711
  Serious: Yes (Death)
  Sender: FDA-Public Use
  Company Number: BG-ROCHE-2319832

PATIENT
  Age: 63 Year
  Sex: Female

DRUGS (2)
  1. TECENTRIQ [Suspect]
     Active Substance: ATEZOLIZUMAB
     Indication: LUNG ADENOCARCINOMA
     Dosage: SECOND INFUSION ON 22/APR/2019
     Route: 042
     Dates: start: 20190401, end: 201904
  2. BISOGAMMA [Concomitant]
     Active Substance: BISOPROLOL FUMARATE
     Dosage: 1 TABLET DAILY
     Route: 048

REACTIONS (2)
  - Respiratory failure [Fatal]
  - Thyroid function test abnormal [Not Recovered/Not Resolved]

NARRATIVE: CASE EVENT DATE: 20190424
